FAERS Safety Report 20410926 (Version 1)
Quarter: 2022Q1

REPORT INFORMATION
  Report Type: Spontaneous
  Country: US (occurrence: None)
  Receive Date: 20220131
  Receipt Date: 20220131
  Transmission Date: 20220423
  Serious: No
  Sender: FDA-Public Use
  Company Number: None

PATIENT
  Age: 56 Year
  Sex: Male

DRUGS (1)
  1. CHLORTHALIDONE [Suspect]
     Active Substance: CHLORTHALIDONE
     Indication: Hypertension
     Dosage: FREQUENCY : DAILY;?
     Route: 048
     Dates: start: 20210909, end: 20210912

REACTIONS (7)
  - Dyspnoea [None]
  - Cough [None]
  - Nausea [None]
  - Vomiting [None]
  - Pollakiuria [None]
  - Headache [None]
  - Urinary tract infection [None]

NARRATIVE: CASE EVENT DATE: 20210914
